FAERS Safety Report 6286482-1 (Version None)
Quarter: 2009Q3

REPORT INFORMATION
  Report Type: 
  Country: None (occurrence: None)
  Receive Date: 20090727
  Receipt Date: 20090727
  Transmission Date: 20100115
  Serious: Yes (Disabling, Other)
  Sender: FDA-Public Use
  Company Number: None

PATIENT
  Age: 40 Year
  Sex: Male
  Weight: 127.0072 kg

DRUGS (3)
  1. ZICAM NASAL GEL ZICAM LLC PHONIX ARIZONA 85016 MARTIX INITIATIVES INC [Suspect]
     Indication: NASOPHARYNGITIS
     Dosage: 1 SPRAY A MONTH WHEN SICK
     Dates: start: 20080101
  2. ZICAM NASAL GEL ZICAM LLC PHONIX ARIZONA 85016 MARTIX INITIATIVES INC [Suspect]
     Indication: NASOPHARYNGITIS
     Dosage: 1 SPRAY A MONTH WHEN SICK
     Dates: start: 20080301
  3. ZICAM ORAL MIST ZICAM LLC PHONIX AZ 85016 MATRIX INITATIVES INC [Suspect]
     Indication: NASOPHARYNGITIS
     Dates: start: 20090201, end: 20090401

REACTIONS (2)
  - ANOSMIA [None]
  - HYPOGEUSIA [None]
